FAERS Safety Report 9824154 (Version 2)
Quarter: 2014Q1

REPORT INFORMATION
  Report Type: Spontaneous
  Country: US (occurrence: US)
  Receive Date: 20140116
  Receipt Date: 20140313
  Transmission Date: 20141002
  Serious: Yes (Other)
  Sender: FDA-Public Use
  Company Number: US-GLAXOSMITHKLINE-A1056184A

PATIENT
  Age: 80 Year
  Sex: Female

DRUGS (6)
  1. ADVAIR [Suspect]
     Indication: ASTHMA
     Dosage: 1PUFF TWICE PER DAY
     Route: 055
     Dates: start: 2000
  2. NASACORT [Concomitant]
  3. RHINOCORT [Concomitant]
  4. VITAMIN D3 [Concomitant]
  5. CITRACAL [Concomitant]
  6. VALIUM [Concomitant]

REACTIONS (8)
  - Bronchiectasis [Unknown]
  - Sinus operation [Unknown]
  - Lower respiratory tract infection [Unknown]
  - Nervousness [Unknown]
  - Malaise [Unknown]
  - Feeling jittery [Unknown]
  - Upper respiratory tract infection [Unknown]
  - Dyspnoea [Unknown]
